FAERS Safety Report 6694241-0 (Version None)
Quarter: 2010Q2

REPORT INFORMATION
  Report Type: 
  Country: None (occurrence: None)
  Receive Date: 20100423
  Receipt Date: 20100414
  Transmission Date: 20101027
  Serious: Yes (Other)
  Sender: FDA-Public Use
  Company Number: US-ASTRAZENECA-2010SE16600

PATIENT
  Age: 49 Year
  Sex: Female
  Weight: 51.3 kg

DRUGS (15)
  1. LISINOPRIL [Suspect]
     Route: 048
  2. SEROQUEL [Suspect]
     Route: 048
  3. CHANTIX [Suspect]
     Indication: SMOKING CESSATION THERAPY
     Route: 048
     Dates: start: 20071201, end: 20080101
  4. AZITHROMYCIN [Suspect]
     Route: 065
  5. AZITHROMYCIN [Suspect]
     Route: 065
  6. AZITHROMYCIN [Suspect]
     Route: 065
  7. AZITHROMYCIN [Suspect]
     Route: 065
  8. SEREVENT [Concomitant]
  9. AZMACORT [Concomitant]
  10. ALBUTEROL [Concomitant]
  11. ATROVENT [Concomitant]
  12. MONTELUKAST SODIUM [Concomitant]
  13. KLONOPIN [Concomitant]
  14. UNKNOWN STERIOD [Concomitant]
     Indication: RESPIRATORY DISORDER
  15. UNKNOWN MEDICATION FOR TREMORS [Concomitant]
     Indication: TREMOR

REACTIONS (14)
  - ALLERGY TEST POSITIVE [None]
  - ASTHMA [None]
  - CARDIOMYOPATHY [None]
  - DYSPHAGIA [None]
  - IMMUNE SYSTEM DISORDER [None]
  - LUNG NEOPLASM [None]
  - NIGHTMARE [None]
  - RESPIRATORY DISTRESS [None]
  - RESPIRATORY TRACT INFECTION [None]
  - ROAD TRAFFIC ACCIDENT [None]
  - SPINAL CORD INJURY CERVICAL [None]
  - SWELLING FACE [None]
  - URTICARIA [None]
  - WEIGHT INCREASED [None]
